FAERS Safety Report 22020994 (Version 1)
Quarter: 2023Q1

REPORT INFORMATION
  Report Type: Spontaneous
  Country: GB (occurrence: GB)
  Receive Date: 20230222
  Receipt Date: 20230222
  Transmission Date: 20230418
  Serious: Yes (Other)
  Sender: FDA-Public Use
  Company Number: GB-MHRA-MED-202302070143009410-FWNZH

PATIENT
  Age: 50 Year
  Sex: Male

DRUGS (1)
  1. BUPRENORPHINE HYDROCHLORIDE [Suspect]
     Active Substance: BUPRENORPHINE HYDROCHLORIDE
     Indication: Drug dependence
     Route: 048
     Dates: start: 20210201, end: 2023

REACTIONS (5)
  - Medication error [Unknown]
  - Insomnia [Not Recovered/Not Resolved]
  - Intrusive thoughts [Not Recovered/Not Resolved]
  - Vision blurred [Not Recovered/Not Resolved]
  - Completed suicide [Recovering/Resolving]

NARRATIVE: CASE EVENT DATE: 20230201
